FAERS Safety Report 12498233 (Version 1)
Quarter: 2016Q2

REPORT INFORMATION
  Report Type: Spontaneous
  Country: DK (occurrence: DK)
  Receive Date: 20160627
  Receipt Date: 20160627
  Transmission Date: 20160815
  Serious: Yes (Other)
  Sender: FDA-Public Use
  Company Number: DK-ACI HEALTHCARE LIMITED-1054334

PATIENT

DRUGS (3)
  1. ACETAMINOPHEN. [Concomitant]
     Active Substance: ACETAMINOPHEN
     Route: 065
  2. CELECOXIB. [Concomitant]
     Active Substance: CELECOXIB
     Route: 065
  3. GABAPENTIN. [Suspect]
     Active Substance: GABAPENTIN
     Route: 048

REACTIONS (4)
  - Hypotension [Unknown]
  - Diplopia [Unknown]
  - Sedation [Unknown]
  - Dizziness [Unknown]
